FAERS Safety Report 20597548 (Version 2)
Quarter: 2022Q2

REPORT INFORMATION
  Report Type: Spontaneous
  Country: US (occurrence: US)
  Receive Date: 20220315
  Receipt Date: 20220412
  Transmission Date: 20220721
  Serious: Yes (Other)
  Sender: FDA-Public Use
  Company Number: US-MALLINCKRODT-T202201108

PATIENT
  Sex: Female
  Weight: 78 kg

DRUGS (4)
  1. H.P. ACTHAR [Suspect]
     Active Substance: CORTICOTROPIN
     Indication: Osteoarthritis
     Dosage: 80 UNITS (1 MILLILITER), TWICE A WEEK
     Route: 058
     Dates: start: 202107
  2. H.P. ACTHAR [Suspect]
     Active Substance: CORTICOTROPIN
     Indication: Lupus nephritis
  3. H.P. ACTHAR [Suspect]
     Active Substance: CORTICOTROPIN
     Indication: Nephritic syndrome
  4. H.P. ACTHAR [Suspect]
     Active Substance: CORTICOTROPIN
     Indication: Bladder disorder

REACTIONS (5)
  - Lumbar puncture [Unknown]
  - Cerebrospinal fluid leakage [Unknown]
  - Surgery [Unknown]
  - Idiopathic intracranial hypertension [Unknown]
  - CSF shunt operation [Unknown]

NARRATIVE: CASE EVENT DATE: 20220101
